FAERS Safety Report 7080859-2 (Version None)
Quarter: 2010Q4

REPORT INFORMATION
  Report Type: 
  Country: None (occurrence: None)
  Receive Date: 20101103
  Receipt Date: 20101022
  Transmission Date: 20110411
  Serious: Yes (Death, Life-Threatening, Hospitalization)
  Sender: FDA-Public Use
  Company Number: FR-PFIZER INC-2010134404

PATIENT
  Age: 38 Year
  Sex: Male

DRUGS (15)
  1. LYRICA [Suspect]
     Indication: PAIN
     Dosage: 50 MG, 1X/DAY
     Route: 048
     Dates: start: 20100624, end: 20100701
  2. TIENAM [Suspect]
     Indication: BACTERAEMIA
     Dosage: 500 MG, 2X/DAY
     Route: 042
     Dates: start: 20100609, end: 20100701
  3. TIENAM [Suspect]
     Dosage: UNK
     Dates: start: 20100703, end: 20100706
  4. ZOPHREN [Suspect]
     Indication: PREMEDICATION
     Dosage: 8 MG, SINGLE
     Route: 048
     Dates: start: 20100630, end: 20100630
  5. GEMZAR [Concomitant]
     Indication: RENAL CANCER METASTATIC
     Dosage: 200 MG, CYCLIC
     Dates: start: 20100630
  6. CISPLATIN [Concomitant]
     Indication: RENAL CANCER METASTATIC
     Dosage: 66 MG, CYCLIC
     Dates: start: 20100630
  7. EMEND [Concomitant]
     Indication: PREMEDICATION
     Dosage: UNK
     Dates: start: 20100630, end: 20100702
  8. GENTAMICIN [Concomitant]
     Indication: BACTERAEMIA
     Dosage: UNK
     Dates: start: 20100609
  9. VANCOMYCIN [Concomitant]
     Indication: BACTERAEMIA
     Dosage: UNK
     Dates: start: 20100624
  10. KESTIN [Concomitant]
     Dosage: UNK
  11. ASPEGIC 1000 [Concomitant]
     Dosage: UNK
  12. CORTANCYL [Concomitant]
     Dosage: UNK
  13. KAYEXALATE [Concomitant]
     Dosage: UNK
  14. XYZAL [Concomitant]
     Dosage: UNK
  15. DOLIPRANE [Concomitant]
     Dosage: UNK

REACTIONS (1)
  - CONVULSION [None]
